FAERS Safety Report 9263655 (Version 1)
Quarter: 2013Q2

REPORT INFORMATION
  Report Type: Spontaneous
  Country: US (occurrence: US)
  Receive Date: 20130430
  Receipt Date: 20130430
  Transmission Date: 20140414
  Serious: No
  Sender: FDA-Public Use
  Company Number: US-COVIDIEN/TYCO HEALTHCARE/MALLINCKRODT-T201301178

PATIENT
  Sex: Male

DRUGS (1)
  1. CYSTO-CONRAY II [Suspect]
     Indication: UROGRAM
     Dosage: 150 ML
     Route: 042
     Dates: start: 20130308, end: 20130308

REACTIONS (1)
  - Incorrect route of drug administration [Recovered/Resolved]
